FAERS Safety Report 7073054-4 (Version None)
Quarter: 2010Q4

REPORT INFORMATION
  Report Type: 
  Country: None (occurrence: None)
  Receive Date: 20101029
  Receipt Date: 20100416
  Transmission Date: 20110411
  Serious: No
  Sender: FDA-Public Use
  Company Number: A0855489A

PATIENT
  Age: 82 Year
  Sex: Female

DRUGS (12)
  1. ADVAIR DISKUS 100/50 [Suspect]
     Indication: CHRONIC OBSTRUCTIVE PULMONARY DISEASE
     Dosage: 1PUFF TWICE PER DAY
     Route: 055
     Dates: start: 20100406
  2. LOPRESSOR [Concomitant]
  3. LISINOPRIL [Concomitant]
  4. GLYBURIDE [Concomitant]
  5. INSULIN [Concomitant]
  6. LASIX [Concomitant]
  7. ZOROXIN [Concomitant]
  8. ALLOPURINOL [Concomitant]
  9. FLEXADINE [Concomitant]
  10. MULTI-VITAMIN [Concomitant]
  11. VITAMIN B6 [Concomitant]
  12. VITAMIN B-12 [Concomitant]

REACTIONS (1)
  - BLOOD GLUCOSE INCREASED [None]
